FAERS Safety Report 17673191 (Version 1)
Quarter: 2020Q2

REPORT INFORMATION
  Report Type: Report from Study
  Country: US (occurrence: US)
  Receive Date: 20200415
  Receipt Date: 20200415
  Transmission Date: 20200713
  Serious: Yes (Hospitalization, Other)
  Sender: FDA-Public Use
  Company Number: US-BRISTOL-MYERS SQUIBB COMPANY-BMS-2020-014719

PATIENT
  Age: 53 Year
  Sex: Male
  Weight: 108.45 kg

DRUGS (2)
  1. NIVOLUMAB [Suspect]
     Active Substance: NIVOLUMAB
     Indication: MENINGIOMA
     Dosage: 321 MILLIGRAM
     Route: 042
     Dates: start: 20191202, end: 20200113
  2. IPILIMUMAB [Suspect]
     Active Substance: IPILIMUMAB
     Indication: MENINGIOMA
     Dosage: 107 MILLIGRAM
     Route: 042
     Dates: start: 20191202, end: 20200113

REACTIONS (4)
  - Dehydration [Recovered/Resolved]
  - Exophthalmos [Recovering/Resolving]
  - Endocrine disorder [Unknown]
  - Fatigue [Unknown]

NARRATIVE: CASE EVENT DATE: 20200210
